FAERS Safety Report 7415949-5 (Version None)
Quarter: 2011Q2

REPORT INFORMATION
  Report Type: 
  Country: None (occurrence: None)
  Receive Date: 20110414
  Receipt Date: 20110406
  Transmission Date: 20111010
  Serious: Yes (Other)
  Sender: FDA-Public Use
  Company Number: PHHY2011CH08835

PATIENT

DRUGS (5)
  1. CLOPIN ECO [Suspect]
     Indication: SCHIZOPHRENIA, DISORGANISED TYPE
     Dosage: 500 MG, UNK
     Route: 048
     Dates: start: 20050101, end: 20101001
  2. TIMONIL [Concomitant]
     Dosage: UNK
     Dates: end: 20100531
  3. INVEGA [Concomitant]
     Dosage: 9 MG, UNK
  4. CAFFEINE [Interacting]
  5. CLOPIN ECO [Interacting]
     Dosage: 200 MG, UNK
     Route: 048
     Dates: start: 20101001

REACTIONS (5)
  - DRUG LEVEL INCREASED [None]
  - GENERAL PHYSICAL HEALTH DETERIORATION [None]
  - URINARY RETENTION [None]
  - DRUG INTERACTION [None]
  - NEGATIVE THOUGHTS [None]
